FAERS Safety Report 5248920-2 (Version None)
Quarter: 2007Q1

REPORT INFORMATION
  Report Type: 
  Country: None (occurrence: None)
  Receive Date: 20070228
  Receipt Date: 20060126
  Transmission Date: 20070707
  Serious: Yes (Life-Threatening, Hospitalization, Disabling, Other)
  Sender: FDA-Public Use
  Company Number: US-GLAXOSMITHKLINE-A0591104A

PATIENT
  Age: 40 Year
  Sex: Male

DRUGS (8)
  1. ZIAGEN [Suspect]
     Indication: HIV INFECTION
     Dosage: 300MG TWICE PER DAY
     Route: 048
     Dates: start: 20050501, end: 20060123
  2. LAMICTAL [Concomitant]
     Indication: DRUG USE FOR UNKNOWN INDICATION
  3. METHOTREXATE [Concomitant]
  4. PLAQUENIL [Concomitant]
  5. VIREAD [Concomitant]
  6. NEVIRAPINE [Concomitant]
  7. LUNESTA [Concomitant]
  8. CONTRAST DYE [Concomitant]

REACTIONS (3)
  - ABDOMINAL PAIN [None]
  - PYREXIA [None]
  - RASH [None]
